FAERS Safety Report 13094754 (Version 3)
Quarter: 2017Q1

REPORT INFORMATION
  Report Type: Spontaneous
  Country: JP (occurrence: JP)
  Receive Date: 20170106
  Receipt Date: 20170210
  Transmission Date: 20170428
  Serious: Yes (Hospitalization, Other)
  Sender: FDA-Public Use
  Company Number: JP-009507513-1612JPN013222

PATIENT
  Age: 83 Year
  Sex: Female

DRUGS (3)
  1. DECADRON [Suspect]
     Active Substance: DEXAMETHASONE
     Dosage: UNK
     Dates: start: 2013, end: 2013
  2. DECADRON [Suspect]
     Active Substance: DEXAMETHASONE
     Dosage: 3.3 MG, UNK
     Route: 041
     Dates: start: 20130515, end: 20130515
  3. DECADRON [Suspect]
     Active Substance: DEXAMETHASONE
     Indication: ASTHMA
     Dosage: 6.6 MG, UNK
     Route: 041
     Dates: start: 20130511, end: 20130514

REACTIONS (5)
  - Headache [Recovered/Resolved]
  - Hypersensitivity [Unknown]
  - Nausea [Recovered/Resolved]
  - Vomiting [Recovered/Resolved]
  - Rash [Recovered/Resolved]

NARRATIVE: CASE EVENT DATE: 2013
